FAERS Safety Report 4293745-8 (Version None)
Quarter: 2004Q1

REPORT INFORMATION
  Report Type: 
  Country: None (occurrence: None)
  Receive Date: 20040212
  Receipt Date: 20040202
  Transmission Date: 20041129
  Serious: Yes (Disabling)
  Sender: FDA-Public Use
  Company Number: GB-GLAXOSMITHKLINE-B0321948A

PATIENT
  Age: 33 Year
  Sex: Male
  Weight: 74 kg

DRUGS (4)
  1. LAMICTAL [Suspect]
     Indication: EPILEPSY
     Dosage: 175MG PER DAY
     Route: 048
     Dates: start: 20030828, end: 20031222
  2. CLOZARIL [Suspect]
     Indication: SCHIZOPHRENIA
     Route: 048
     Dates: start: 20010531, end: 20031220
  3. VALPROIC ACID [Concomitant]
     Indication: MANIA
     Dosage: 2G PER DAY
     Route: 048
     Dates: start: 20031128
  4. BENZTROPINE MESYLATE [Concomitant]
     Indication: SEPSIS
     Dosage: 2MG THREE TIMES PER DAY
     Route: 048
     Dates: start: 20031104

REACTIONS (4)
  - CONVULSION [None]
  - DRUG INTERACTION [None]
  - DRUG LEVEL INCREASED [None]
  - MENTAL DISORDER [None]
